FAERS Safety Report 14387462 (Version 2)
Quarter: 2018Q3

REPORT INFORMATION
  Report Type: Spontaneous
  Country: US (occurrence: US)
  Receive Date: 20180115
  Receipt Date: 20180910
  Transmission Date: 20181010
  Serious: Yes (Other)
  Sender: FDA-Public Use
  Company Number: US-SA-2017SA195732

PATIENT
  Age: 71 Year
  Sex: Female
  Weight: 64.86 kg

DRUGS (11)
  1. TAXOTERE [Suspect]
     Active Substance: DOCETAXEL
     Dosage: UNK
     Route: 042
     Dates: start: 20091217, end: 20091217
  2. CALTRATE [Concomitant]
     Active Substance: CALCIUM CARBONATE
  3. TAXOTERE [Suspect]
     Active Substance: DOCETAXEL
     Dosage: UNK UNK,QCY
     Route: 042
     Dates: start: 20091029, end: 20091029
  4. ARIMIDEX [Concomitant]
     Active Substance: ANASTROZOLE
     Dosage: UNK
     Dates: start: 20091019
  5. BABY ASPIRIN [Concomitant]
     Active Substance: ASPIRIN
  6. XALATAN [Concomitant]
     Active Substance: LATANOPROST
  7. LISINOPRIL. [Concomitant]
     Active Substance: LISINOPRIL
  8. TIMOLOL. [Concomitant]
     Active Substance: TIMOLOL
  9. ALPHAGAN P [Concomitant]
     Active Substance: BRIMONIDINE TARTRATE
  10. SIMVASTATIN. [Concomitant]
     Active Substance: SIMVASTATIN
  11. KLOR?CON M20 [Concomitant]
     Active Substance: POTASSIUM CHLORIDE

REACTIONS (5)
  - Pain [Unknown]
  - Emotional distress [Unknown]
  - Impaired quality of life [Unknown]
  - Alopecia [Not Recovered/Not Resolved]
  - Anxiety [Unknown]
